FAERS Safety Report 9703727 (Version 1)
Quarter: 2013Q4

REPORT INFORMATION
  Report Type: Report from Study
  Country: US (occurrence: US)
  Receive Date: 20131122
  Receipt Date: 20131122
  Transmission Date: 20140711
  Serious: Yes (Other)
  Sender: FDA-Public Use
  Company Number: US-JNJFOC-20131108929

PATIENT
  Sex: Female
  Weight: 43.55 kg

DRUGS (3)
  1. REMICADE [Suspect]
     Indication: CROHN^S DISEASE
     Route: 042
     Dates: start: 2009
  2. REMICADE [Suspect]
     Indication: CROHN^S DISEASE
     Route: 042
     Dates: start: 2000
  3. UNKNOWN MEDICATION [Suspect]
     Indication: OSTEOPOROSIS
     Route: 065

REACTIONS (11)
  - Diabetes mellitus [Unknown]
  - Cataract [Unknown]
  - Osteoporosis [Not Recovered/Not Resolved]
  - Gout [Unknown]
  - Meningioma [Unknown]
  - Small intestinal resection [Unknown]
  - Cholangitis sclerosing [Unknown]
  - Hepatitis [Unknown]
  - Hypertension [Unknown]
  - Abnormal loss of weight [Unknown]
  - Stoma site haemorrhage [Recovered/Resolved]
